FAERS Safety Report 8958696 (Version 1)
Quarter: 2012Q4

REPORT INFORMATION
  Report Type: 
  Country: US (occurrence: US)
  Receive Date: 20121212
  Receipt Date: 20121212
  Transmission Date: 20130627
  Serious: Yes (Hospitalization)
  Sender: FDA-Public Use
  Company Number: US-MERCK-1212USA003462

PATIENT
  Age: 64 Year
  Sex: Female

DRUGS (8)
  1. JANUMET [Suspect]
     Indication: DIABETES MELLITUS
     Dosage: UNK
     Route: 048
     Dates: start: 2009, end: 20121204
  2. NOVOLOG [Concomitant]
  3. INSULIN [Concomitant]
  4. LIPITOR [Concomitant]
  5. PLAVIX [Concomitant]
  6. TRICOR (ADENOSINE) [Concomitant]
  7. AMLODIPINE [Concomitant]
  8. ZETIA [Concomitant]
     Route: 048

REACTIONS (1)
  - Pancreatitis [Recovering/Resolving]
